FAERS Safety Report 7816820-7 (Version None)
Quarter: 2011Q4

REPORT INFORMATION
  Report Type: 
  Country: None (occurrence: None)
  Receive Date: 20111017
  Receipt Date: 20111010
  Transmission Date: 20120403
  Serious: Yes (Death)
  Sender: FDA-Public Use
  Company Number: CN-ASTELLAS-2011US006617

PATIENT
  Age: 90 Year
  Sex: Female
  Weight: 50 kg

DRUGS (2)
  1. TARCEVA [Suspect]
     Indication: METASTASES TO LUNG
  2. TARCEVA [Suspect]
     Indication: COLON CANCER METASTATIC
     Dosage: 150 MG, UID/QD
     Route: 048
     Dates: start: 20100724, end: 20100802

REACTIONS (2)
  - OFF LABEL USE [None]
  - CARDIAC DISORDER [None]
